FAERS Safety Report 9145811 (Version 1)
Quarter: 2013Q1

REPORT INFORMATION
  Report Type: Spontaneous
  Country: US (occurrence: None)
  Receive Date: 20130227
  Receipt Date: 20130227
  Transmission Date: 20140127
  Serious: Yes (Other)
  Sender: FDA-Public Use
  Company Number: None

PATIENT
  Age: 31 Year
  Sex: Female
  Weight: 58.97 kg

DRUGS (1)
  1. ORTHO TRI-CYCLEN LO [Suspect]
     Dosage: 1 PILL ONCE DAILY PO
     Route: 048
     Dates: start: 20110312, end: 20110407

REACTIONS (1)
  - Pulmonary embolism [None]
